FAERS Safety Report 9233771 (Version 1)
Quarter: 2013Q2

REPORT INFORMATION
  Report Type: Spontaneous
  Country: US (occurrence: US)
  Receive Date: 20130416
  Receipt Date: 20130416
  Transmission Date: 20140414
  Serious: No
  Sender: FDA-Public Use
  Company Number: US-BANPHARM-20131060

PATIENT
  Age: 56 Year
  Sex: Male
  Weight: 133.81 kg

DRUGS (6)
  1. ALEVE LIQUID GELS 220MG [Suspect]
     Dosage: 2 DF, QD,
     Route: 048
     Dates: start: 201205
  2. LISINOPRIL [Concomitant]
  3. ATENOLOL [Concomitant]
  4. PROVASTATIN [Concomitant]
  5. CLONIDINE [Concomitant]
  6. WAFERIN SODIUM [Concomitant]

REACTIONS (2)
  - Nausea [Recovered/Resolved]
  - Drug effect incomplete [Unknown]
